FAERS Safety Report 21352426 (Version 1)
Quarter: 2022Q3

REPORT INFORMATION
  Report Type: Spontaneous
  Country: US (occurrence: US)
  Receive Date: 20220920
  Receipt Date: 20220920
  Transmission Date: 20221027
  Serious: Yes (Other)
  Sender: FDA-Public Use
  Company Number: US-BRISTOL-MYERS SQUIBB COMPANY-2022-106699

PATIENT
  Age: 69 Year
  Sex: Female

DRUGS (6)
  1. POMALYST [Suspect]
     Active Substance: POMALIDOMIDE
     Indication: Plasma cell myeloma
     Dosage: DAILY ON DAY 21 THEN 7 DAYS OFF.
     Route: 048
     Dates: start: 20201127
  2. AMLODIPINE [Concomitant]
     Active Substance: AMLODIPINE BESYLATE
  3. CARVEDILOL [Concomitant]
     Active Substance: CARVEDILOL
  4. VITAMINS NOS [Concomitant]
     Active Substance: VITAMINS
  5. CINACALCET [Concomitant]
     Active Substance: CINACALCET
  6. LOSARTAN [Concomitant]
     Active Substance: LOSARTAN

REACTIONS (3)
  - Vomiting [Unknown]
  - Rash [Unknown]
  - Headache [Unknown]

NARRATIVE: CASE EVENT DATE: 20220914
